FAERS Safety Report 4659693-6 (Version None)
Quarter: 2005Q2

REPORT INFORMATION
  Report Type: 
  Country: None (occurrence: None)
  Receive Date: 20050420
  Receipt Date: 20050317
  Transmission Date: 20051028
  Serious: No
  Sender: FDA-Public Use
  Company Number: PHEH2005US03251

PATIENT
  Age: 76 Year
  Sex: Male

DRUGS (6)
  1. ENABLEX [Suspect]
     Indication: HYPERTONIC BLADDER
     Dosage: 7.5 MG QD ORAL
     Route: 048
     Dates: start: 20050310
  2. VERAPAMIL [Concomitant]
  3. MAXZIDE (HYDROCHLOROTHIAZIDE, TRIMATERENE) [Concomitant]
  4. ADVAIR (FLUTICASONE PROPIONATE, SALMETEROL XINAFOATE) [Concomitant]
  5. SINGULAIR (MONTELUKAST) [Concomitant]
  6. ALLEGRA [Concomitant]

REACTIONS (2)
  - DRY MOUTH [None]
  - SOMNOLENCE [None]
